FAERS Safety Report 8086420-5 (Version None)
Quarter: 2012Q1

REPORT INFORMATION
  Report Type: 
  Country: None (occurrence: None)
  Receive Date: 20120128
  Receipt Date: 20110510
  Transmission Date: 20120608
  Serious: No
  Sender: FDA-Public Use
  Company Number: US-ABBOTT-11P-163-0724778-00

PATIENT
  Age: 45 Year
  Sex: Male

DRUGS (8)
  1. HUMIRA [Suspect]
     Dates: start: 20110314
  2. HUMIRA [Suspect]
     Dates: start: 20110202, end: 20110314
  3. FLAGYL [Concomitant]
     Indication: CROHN'S DISEASE
     Dosage: 2 PILLS IN AM AND 1 IN PM
  4. HUMIRA [Suspect]
     Indication: CROHN'S DISEASE
     Dates: start: 20101201
  5. HUMIRA [Suspect]
     Dosage: 2 INJECTIONS AT ONCE
     Dates: start: 20110505
  6. IMURAN [Concomitant]
     Indication: CROHN'S DISEASE
  7. HUMIRA [Suspect]
     Dosage: 3 INJECTIONS AT ONCE
     Dates: start: 20110421
  8. HUMIRA [Suspect]
     Dosage: 3 INJECTIONS AT ONCE
     Dates: start: 20110428

REACTIONS (3)
  - RECTAL ABSCESS [None]
  - SCROTAL ABSCESS [None]
  - ABSCESS DRAINAGE [None]
